FAERS Safety Report 8395008-8 (Version None)
Quarter: 2012Q2

REPORT INFORMATION
  Report Type: 
  Country: None (occurrence: None)
  Receive Date: 20120530
  Receipt Date: 20120518
  Transmission Date: 20120825
  Serious: Yes (Other)
  Sender: FDA-Public Use
  Company Number: SE-ELI_LILLY_AND_COMPANY-SE201205007006

PATIENT
  Sex: Female

DRUGS (2)
  1. ANTABUSE [Concomitant]
     Indication: ALCOHOL ABUSE
  2. OLANZAPINE [Suspect]
     Indication: IMPULSE-CONTROL DISORDER
     Dosage: 300 MG, EVERY 2 WEEKS
     Route: 030
     Dates: start: 20110101

REACTIONS (6)
  - AGITATION [None]
  - OFF LABEL USE [None]
  - AMNESIA [None]
  - CONFUSIONAL STATE [None]
  - FATIGUE [None]
  - HALLUCINATION [None]
